FAERS Safety Report 15302320 (Version 3)
Quarter: 2018Q4

REPORT INFORMATION
  Report Type: Not Available
  Country: US (occurrence: US)
  Receive Date: 20180821
  Receipt Date: 20181003
  Transmission Date: 20190204
  Serious: Yes (Death, Other)
  Sender: FDA-Public Use
  Company Number: US-NEUROCRINE BIOSCIENCES INC.-2018NBI02472

PATIENT
  Age: 58 Year
  Sex: Male

DRUGS (7)
  1. FLUPHENAZINE [Concomitant]
     Active Substance: FLUPHENAZINE
     Indication: SCHIZOPHRENIA
  2. INGREZZA [Suspect]
     Active Substance: VALBENAZINE
     Indication: TARDIVE DYSKINESIA
     Route: 048
  3. INGREZZA [Suspect]
     Active Substance: VALBENAZINE
     Route: 048
     Dates: start: 20180608
  4. TOPIRAMATE. [Concomitant]
     Active Substance: TOPIRAMATE
     Indication: SCHIZOPHRENIA
  5. EFFEXOR [Concomitant]
     Active Substance: VENLAFAXINE HYDROCHLORIDE
     Indication: SCHIZOPHRENIA
  6. BENZTROPINE. [Concomitant]
     Active Substance: BENZTROPINE
     Indication: SCHIZOPHRENIA
  7. QUETIAPINE. [Concomitant]
     Active Substance: QUETIAPINE
     Indication: SCHIZOPHRENIA
     Dosage: TWO TABLETS ONCE DAILY AT BEDTIME

REACTIONS (4)
  - Deep vein thrombosis [Fatal]
  - Lower limb fracture [Unknown]
  - Pulmonary embolism [Fatal]
  - Fall [Unknown]

NARRATIVE: CASE EVENT DATE: 20180809
